FAERS Safety Report 5854489-1 (Version None)
Quarter: 2008Q3

REPORT INFORMATION
  Report Type: 
  Country: None (occurrence: None)
  Receive Date: 20080822
  Receipt Date: 20080709
  Transmission Date: 20090109
  Serious: No
  Sender: FDA-Public Use
  Company Number: US-ABBOTT-05P-163-0310577-00

PATIENT
  Sex: Female

DRUGS (2)
  1. SYNTHROID [Suspect]
     Indication: HYPOTHYROIDISM
     Dosage: 50MCG-WHITE ONE-CUTTING IT IN HALF
     Route: 048
  2. SYNTHROID [Suspect]

REACTIONS (2)
  - HYPERSENSITIVITY [None]
  - PRURITUS [None]
